FAERS Safety Report 7328016-6 (Version None)
Quarter: 2011Q1

REPORT INFORMATION
  Report Type: 
  Country: None (occurrence: None)
  Receive Date: 20110303
  Receipt Date: 20110222
  Transmission Date: 20110831
  Serious: Yes (Other)
  Sender: FDA-Public Use
  Company Number: JP-BAYER-2011-017547

PATIENT
  Age: 24 Year
  Sex: Female

DRUGS (6)
  1. YAZ [Suspect]
     Indication: DYSMENORRHOEA
     Dosage: 1 DF, UNK
     Route: 048
     Dates: start: 20110213
  2. DIAZEPAM [Interacting]
  3. CLOTIAZEPAM [Interacting]
  4. UNKNOWN [Suspect]
     Indication: DEPRESSION
     Route: 065
  5. AMOXAN [Interacting]
  6. SEPAZON [Interacting]

REACTIONS (2)
  - SUICIDE ATTEMPT [None]
  - DEPRESSION [None]
